FAERS Safety Report 24033704 (Version 1)
Quarter: 2024Q3

REPORT INFORMATION
  Report Type: Spontaneous
  Country: TR (occurrence: TR)
  Receive Date: 20240701
  Receipt Date: 20240701
  Transmission Date: 20241017
  Serious: Yes (Death, Hospitalization, Other)
  Sender: JOHNSON AND JOHNSON
  Company Number: TR-JNJFOC-20240672358

PATIENT
  Age: 35 Year
  Sex: Male

DRUGS (2)
  1. DARZALEX [Suspect]
     Active Substance: DARATUMUMAB
     Indication: T-cell type acute leukaemia
     Route: 065
     Dates: start: 20240603, end: 20240614
  2. VINCRISTINE [Suspect]
     Active Substance: VINCRISTINE
     Indication: T-cell type acute leukaemia
     Route: 065
     Dates: start: 20240604

REACTIONS (4)
  - Death [Fatal]
  - Septic shock [Not Recovered/Not Resolved]
  - Cytopenia [Not Recovered/Not Resolved]
  - Off label use [Unknown]

NARRATIVE: CASE EVENT DATE: 20240603
